FAERS Safety Report 6980423-7 (Version None)
Quarter: 2010Q3

REPORT INFORMATION
  Report Type: 
  Country: None (occurrence: None)
  Receive Date: 20100914
  Receipt Date: 20100315
  Transmission Date: 20110219
  Serious: No
  Sender: FDA-Public Use
  Company Number: US-ABBOTT-10P-163-0632690-00

PATIENT
  Sex: Male
  Weight: 48.124 kg

DRUGS (6)
  1. DEPAKOTE [Suspect]
     Indication: CONVULSION
     Dosage: 2 DOSES OF 125 MG IN AM; 3 DOSES OF 125 MG IN PM
     Dates: start: 20020701
  2. COD LIVER OIL [Concomitant]
     Indication: PRODUCT USED FOR UNKNOWN INDICATION
  3. L-CARNITINE [Concomitant]
     Indication: CARNITINE DEFICIENCY
     Dosage: SUPPLEMENT
  4. MAGNESIUM [Concomitant]
     Indication: PRODUCT USED FOR UNKNOWN INDICATION
     Dosage: SUPPLEMENT
     Route: 048
  5. CALCIUM [Concomitant]
     Indication: OSTEOPOROSIS
     Route: 048
  6. MULTIVITAMINS WITH IRON [Concomitant]
     Indication: ANAEMIA
     Route: 048
     Dates: start: 20090301

REACTIONS (4)
  - ANAEMIA [None]
  - CARNITINE DEFICIENCY [None]
  - OSTEOPOROSIS [None]
  - VITAMIN D DEFICIENCY [None]
